FAERS Safety Report 14043069 (Version 2)
Quarter: 2017Q4

REPORT INFORMATION
  Report Type: Spontaneous
  Country: US (occurrence: US)
  Receive Date: 20171004
  Receipt Date: 20171009
  Transmission Date: 20180321
  Serious: No
  Sender: FDA-Public Use
  Company Number: US-PFIZER INC-2017424254

PATIENT
  Age: 51 Year
  Sex: Female
  Weight: 77.11 kg

DRUGS (2)
  1. CHANTIX [Suspect]
     Active Substance: VARENICLINE TARTRATE
     Indication: SMOKING CESSATION THERAPY
     Dosage: 1 DF, 2X/DAY (1 TABLET IN THE MORNING AND 1 TABLET AT NIGHT)
     Route: 048
     Dates: start: 2014, end: 2014
  2. CHANTIX [Suspect]
     Active Substance: VARENICLINE TARTRATE
     Dosage: 0.5 DF, 2X/DAY (ONE HALF TABLET IN THE MORNING AND A HALF TABLET AT NIGHT)
     Dates: start: 2014, end: 2014

REACTIONS (5)
  - Intentional product use issue [Unknown]
  - Personality disorder [Unknown]
  - Mood swings [Unknown]
  - Abnormal dreams [Recovered/Resolved]
  - Drug effect delayed [Unknown]

NARRATIVE: CASE EVENT DATE: 2014
